FAERS Safety Report 6091414-5 (Version None)
Quarter: 2009Q1

REPORT INFORMATION
  Report Type: 
  Country: None (occurrence: None)
  Receive Date: 20090225
  Receipt Date: 20090123
  Transmission Date: 20090719
  Serious: No
  Sender: FDA-Public Use
  Company Number: A0764832A

PATIENT
  Sex: Female

DRUGS (2)
  1. VERAMYST [Suspect]
     Route: 045
     Dates: start: 20090119
  2. CLARITIN-D [Suspect]
     Indication: DRUG USE FOR UNKNOWN INDICATION
     Route: 065
     Dates: start: 20090119, end: 20090122

REACTIONS (2)
  - OROPHARYNGEAL PAIN [None]
  - SWELLING FACE [None]
